FAERS Safety Report 4488142-6 (Version None)
Quarter: 2004Q4

REPORT INFORMATION
  Report Type: 
  Country: None (occurrence: None)
  Receive Date: 20041022
  Receipt Date: 20041018
  Transmission Date: 20050328
  Serious: Yes (Other)
  Sender: FDA-Public Use
  Company Number: ENTC2004-0198

PATIENT
  Age: 74 Year
  Sex: Male

DRUGS (1)
  1. STALEVO 100 [Suspect]
     Indication: PARKINSONISM
     Dosage: TID
     Route: 048

REACTIONS (2)
  - ERYTHEMA [None]
  - HYPERTENSIVE CRISIS [None]
